FAERS Safety Report 4975658-9 (Version None)
Quarter: 2006Q2

REPORT INFORMATION
  Report Type: 
  Country: None (occurrence: None)
  Receive Date: 20060411
  Receipt Date: 20060217
  Transmission Date: 20061013
  Serious: Yes (Hospitalization)
  Sender: FDA-Public Use
  Company Number: MEDI-0004209

PATIENT
  Age: 60 Year
  Sex: Female
  Weight: 58.9676 kg

DRUGS (2)
  1. ETHYOL [Suspect]
     Indication: RADIOTHERAPY
     Dosage: 50 MG, 5 IN 1 WK, SUBCUTANEOUS
     Route: 058
     Dates: start: 20051202, end: 20060101
  2. RADIATION THERAPY [Concomitant]

REACTIONS (14)
  - DIARRHOEA [None]
  - DYSPNOEA [None]
  - INJECTION SITE ERYTHEMA [None]
  - INJECTION SITE RASH [None]
  - LOCAL SWELLING [None]
  - MUCOSAL EROSION [None]
  - PHARYNGOLARYNGEAL PAIN [None]
  - PRURITUS GENERALISED [None]
  - RASH GENERALISED [None]
  - SCAB [None]
  - SCRATCH [None]
  - SKIN LESION [None]
  - SWELLING FACE [None]
  - WEIGHT DECREASED [None]
